FAERS Safety Report 19714284 (Version 1)
Quarter: 2021Q3

REPORT INFORMATION
  Report Type: Spontaneous
  Country: SI (occurrence: SI)
  Receive Date: 20210818
  Receipt Date: 20210818
  Transmission Date: 20211014
  Serious: Yes (Other)
  Sender: FDA-Public Use
  Company Number: SI-BRISTOL-MYERS SQUIBB COMPANY-BMS-2021-081886

PATIENT
  Age: 80 Year
  Sex: Male

DRUGS (1)
  1. ELIQUIS [Suspect]
     Active Substance: APIXABAN
     Indication: CEREBROVASCULAR ACCIDENT PROPHYLAXIS
     Dosage: 5 MILLIGRAM, QD
     Route: 065

REACTIONS (4)
  - Chest pain [Unknown]
  - Lung neoplasm malignant [Unknown]
  - Off label use [Unknown]
  - Metastases to central nervous system [Unknown]

NARRATIVE: CASE EVENT DATE: 20210806
